FAERS Safety Report 8525733-7 (Version None)
Quarter: 2012Q3

REPORT INFORMATION
  Report Type: 
  Country: None (occurrence: None)
  Receive Date: 20120720
  Receipt Date: 20120711
  Transmission Date: 20120928
  Serious: Yes (Hospitalization, Disabling, Other)
  Sender: FDA-Public Use
  Company Number: US-009507513-0910USA01555

PATIENT

DRUGS (21)
  1. MK-9278 [Concomitant]
     Route: 048
     Dates: start: 20000101
  2. DILAUDID [Concomitant]
  3. LEVOTIROXINA S.O [Concomitant]
     Dosage: 75 A?G, UNK
  4. FOSAMAX [Suspect]
  5. CALCIUM (UNSPECIFIED) (+) VITAMIN D (UNSPECIFIED) [Concomitant]
     Dosage: 600-200
     Route: 048
     Dates: start: 19830101
  6. PREMARIN [Concomitant]
     Dosage: 0.65
     Route: 067
  7. ELAVIL [Concomitant]
     Dosage: 25 MG, UNK
     Route: 048
  8. OMEGA-3 MARINE TRIGLYCERIDES [Concomitant]
     Dates: start: 20000101
  9. FOSAMAX [Suspect]
     Dosage: A.M
     Route: 048
     Dates: end: 20061108
  10. ELAVIL [Concomitant]
     Indication: SLEEP DISORDER
     Dates: start: 19850101
  11. ZOCOR [Concomitant]
     Dosage: 20 MG, UNK
     Route: 048
     Dates: start: 20030101
  12. NIACIN [Concomitant]
     Dosage: 500 MG, UNK
     Route: 048
     Dates: start: 20050101
  13. VAGIFEM [Concomitant]
     Dosage: 25 A?G, BIW
     Route: 067
  14. SIMVASTATIN [Concomitant]
     Dates: start: 20030101
  15. FOSAMAX [Suspect]
     Dosage: 70 MG, QW
     Route: 048
     Dates: start: 20081017, end: 20081201
  16. FOSAMAX [Suspect]
     Indication: OSTEOPENIA
  17. FOSAMAX [Suspect]
     Indication: OSTEOPOROSIS
     Dosage: A.M
     Route: 048
     Dates: start: 20010905, end: 20090729
  18. ASPIRIN [Concomitant]
     Dosage: 81 MG, UNK
     Dates: start: 20070101
  19. LOTENSIN HCT [Concomitant]
     Dosage: 10-12.5
     Route: 048
     Dates: start: 20030101
  20. CYANOCOBALAMIN [Concomitant]
  21. BONIVA [Suspect]

REACTIONS (41)
  - RHINITIS ALLERGIC [None]
  - PATELLOFEMORAL PAIN SYNDROME [None]
  - PAIN IN EXTREMITY [None]
  - JOINT EFFUSION [None]
  - GASTROENTERITIS [None]
  - TENSION HEADACHE [None]
  - ATROPHY [None]
  - MYOFASCIAL PAIN SYNDROME [None]
  - SPINAL COMPRESSION FRACTURE [None]
  - NAUSEA [None]
  - FOOT DEFORMITY [None]
  - ANAEMIA [None]
  - ARACHNOID CYST [None]
  - PYREXIA [None]
  - OSTEOPENIA [None]
  - ARTHROPATHY [None]
  - ABDOMINAL DISCOMFORT [None]
  - DIARRHOEA [None]
  - ILIOTIBIAL BAND SYNDROME [None]
  - VULVAL DISORDER [None]
  - FATIGUE [None]
  - OSTEOARTHRITIS [None]
  - FOOT FRACTURE [None]
  - FEMUR FRACTURE [None]
  - ARTHRITIS [None]
  - URETHRAL CARUNCLE [None]
  - VOMITING [None]
  - ARTHRODESIS [None]
  - ANXIETY [None]
  - ARTHRALGIA [None]
  - FRACTURE DELAYED UNION [None]
  - BUNION [None]
  - VAGINITIS BACTERIAL [None]
  - HAEMORRHAGIC ANAEMIA [None]
  - CONSTIPATION [None]
  - CHEST PAIN [None]
  - FALL [None]
  - INTERVERTEBRAL DISC PROTRUSION [None]
  - MENISCUS LESION [None]
  - CYSTITIS INTERSTITIAL [None]
  - SPINAL COLUMN STENOSIS [None]
